FAERS Safety Report 6102291-8 (Version None)
Quarter: 2009Q1

REPORT INFORMATION
  Report Type: 
  Country: None (occurrence: None)
  Receive Date: 20090304
  Receipt Date: 20090228
  Transmission Date: 20090719
  Serious: Yes (Hospitalization)
  Sender: FDA-Public Use
  Company Number: US-BIOGENIDEC-2009BI004328

PATIENT
  Sex: Male

DRUGS (2)
  1. TYSABRI [Suspect]
     Indication: MULTIPLE SCLEROSIS
     Route: 042
     Dates: start: 20080625, end: 20080907
  2. TYSABRI [Suspect]
     Route: 042
     Dates: start: 20090213

REACTIONS (2)
  - MENTAL STATUS CHANGES [None]
  - MULTIPLE SCLEROSIS [None]
